FAERS Safety Report 4889996-1 (Version None)
Quarter: 2006Q1

REPORT INFORMATION
  Report Type: 
  Country: None (occurrence: None)
  Receive Date: 20060124
  Receipt Date: 20051031
  Transmission Date: 20060701
  Serious: Yes (Other)
  Sender: FDA-Public Use
  Company Number: US-GILEAD-2005-0008904

PATIENT
  Sex: Female
  Weight: 75.137 kg

DRUGS (3)
  1. EMTRICITABINE [Suspect]
     Route: 048
     Dates: start: 20051002, end: 20051002
  2. TENOFOVIR DISOPROXIL FUMARATE [Suspect]
     Route: 048
     Dates: start: 20051002, end: 20051002
  3. EFAVIRENZ [Suspect]
     Route: 048
     Dates: start: 20051002, end: 20051002

REACTIONS (4)
  - ABORTION MISSED [None]
  - ABORTION SPONTANEOUS [None]
  - DRUG EXPOSURE DURING PREGNANCY [None]
  - HYPOTENSION [None]
